FAERS Safety Report 7881985-8 (Version None)
Quarter: 2011Q4

REPORT INFORMATION
  Report Type: 
  Country: None (occurrence: None)
  Receive Date: 20111101
  Receipt Date: 20110606
  Transmission Date: 20120403
  Serious: No
  Sender: FDA-Public Use
  Company Number: US-AMGEN-USASP2011026448

PATIENT
  Age: 55 Year
  Sex: Female

DRUGS (1)
  1. ENBREL [Suspect]
     Indication: PSORIASIS
     Dosage: UNK
     Dates: start: 20110420

REACTIONS (5)
  - FATIGUE [None]
  - MENTAL IMPAIRMENT [None]
  - INJECTION SITE REACTION [None]
  - ARTHRALGIA [None]
  - FEELING ABNORMAL [None]
